FAERS Safety Report 17406937 (Version 1)
Quarter: 2020Q1

REPORT INFORMATION
  Report Type: Spontaneous
  Country: US (occurrence: US)
  Receive Date: 20200211
  Receipt Date: 20200211
  Transmission Date: 20200409
  Serious: Yes (Hospitalization)
  Sender: FDA-Public Use
  Company Number: None

PATIENT
  Sex: Female

DRUGS (18)
  1. ZARXIO [Suspect]
     Active Substance: FILGRASTIM-SNDZ
     Indication: BREAST CANCER FEMALE
     Dosage: ?          OTHER FREQUENCY:DAILY FOR 5 DAYS;?
     Route: 058
     Dates: start: 20190614
  2. OXYCODONE [Concomitant]
     Active Substance: OXYCODONE
  3. SINGULAIR [Concomitant]
     Active Substance: MONTELUKAST SODIUM
  4. PIQRAY [Suspect]
     Active Substance: ALPELISIB
     Indication: BREAST CANCER FEMALE
     Route: 048
     Dates: start: 20200117
  5. DICLOFENAC [Concomitant]
     Active Substance: DICLOFENAC
  6. METFORMIN [Concomitant]
     Active Substance: METFORMIN HYDROCHLORIDE
  7. MULTIVITAMIN [Concomitant]
     Active Substance: VITAMINS
  8. OCUVITE [Concomitant]
     Active Substance: VITAMINS
  9. MONTELUKAST [Concomitant]
     Active Substance: MONTELUKAST SODIUM
  10. SUMATRIPTAN. [Concomitant]
     Active Substance: SUMATRIPTAN
  11. XGEVA [Concomitant]
     Active Substance: DENOSUMAB
  12. ALPRAZOLAM. [Concomitant]
     Active Substance: ALPRAZOLAM
  13. CALCIUM [Concomitant]
     Active Substance: CALCIUM
  14. PROVENTIL [Concomitant]
     Active Substance: ALBUTEROL
  15. RALOCIFENE [Concomitant]
  16. FASLODEX [Concomitant]
     Active Substance: FULVESTRANT
  17. LUTEIN [Concomitant]
     Active Substance: LUTEIN
  18. NASONEX [Concomitant]
     Active Substance: MOMETASONE FUROATE

REACTIONS (1)
  - Hospitalisation [None]
